FAERS Safety Report 5989141-5 (Version None)
Quarter: 2008Q4

REPORT INFORMATION
  Report Type: 
  Country: None (occurrence: None)
  Receive Date: 20081209
  Receipt Date: 20081209
  Transmission Date: 20090506
  Serious: No
  Sender: FDA-Public Use
  Company Number: None

PATIENT
  Sex: Female
  Weight: 63.5 kg

DRUGS (2)
  1. CISPLATIN [Suspect]
     Dosage: 130 MG
     Dates: end: 20081118
  2. GEMCITABINE HCL [Suspect]
     Dosage: 4100 MG
     Dates: end: 20081125

REACTIONS (1)
  - BLOOD POTASSIUM DECREASED [None]
